FAERS Safety Report 7672385-4 (Version None)
Quarter: 2011Q3

REPORT INFORMATION
  Report Type: 
  Country: None (occurrence: None)
  Receive Date: 20110809
  Receipt Date: 20110725
  Transmission Date: 20111222
  Serious: Yes (Other)
  Sender: FDA-Public Use
  Company Number: TR-WATSON-2011-12044

PATIENT
  Age: 5 Year
  Sex: Female

DRUGS (1)
  1. VALPROATE SODIUM [Suspect]
     Indication: CONVULSION PROPHYLAXIS
     Dosage: 10 MG/KG/DAY FOLLOWED BY 20 MG/KG/DAY
     Route: 065

REACTIONS (4)
  - RASH [None]
  - ONYCHOMADESIS [None]
  - ALOPECIA [None]
  - SKIN EXFOLIATION [None]
